FAERS Safety Report 6326297-9 (Version None)
Quarter: 2009Q3

REPORT INFORMATION
  Report Type: 
  Country: None (occurrence: None)
  Receive Date: 20090820
  Receipt Date: 20090805
  Transmission Date: 20100115
  Serious: Yes (Hospitalization, Other)
  Sender: FDA-Public Use
  Company Number: MOZO-1000227

PATIENT
  Age: 70 Year
  Sex: Female
  Weight: 63.9 kg

DRUGS (6)
  1. MOZOBIL [Suspect]
     Indication: HAEMATOPOIETIC STEM CELL MOBILISATION
     Dosage: 15.382 MG, QD;
     Dates: start: 20090622, end: 20090622
  2. MOZOBIL [Suspect]
     Indication: MULTIPLE MYELOMA
     Dosage: 15.382 MG, QD;
     Dates: start: 20090622, end: 20090622
  3. NEUPOGEN [Concomitant]
  4. ADVAIR DISKUS 100/50 [Concomitant]
  5. PROZAC [Concomitant]
  6. RITALIN [Concomitant]

REACTIONS (29)
  - ACUTE RESPIRATORY DISTRESS SYNDROME [None]
  - ANAEMIA [None]
  - ASTHENIA [None]
  - ATELECTASIS [None]
  - BLOOD ALKALINE PHOSPHATASE INCREASED [None]
  - BLOOD BILIRUBIN INCREASED [None]
  - BLOOD GLUCOSE DECREASED [None]
  - BLOOD GLUCOSE INCREASED [None]
  - BLOOD MAGNESIUM DECREASED [None]
  - BLOOD PHOSPHORUS DECREASED [None]
  - BODY TEMPERATURE INCREASED [None]
  - CONSTIPATION [None]
  - DIARRHOEA [None]
  - HAEMATOCRIT DECREASED [None]
  - HAEMOGLOBIN DECREASED [None]
  - HYPERTENSION [None]
  - HYPOKALAEMIA [None]
  - HYPOTENSION [None]
  - INTERNATIONAL NORMALISED RATIO INCREASED [None]
  - LIVER FUNCTION TEST ABNORMAL [None]
  - NAUSEA [None]
  - ORAL CANDIDIASIS [None]
  - PLATELET COUNT DECREASED [None]
  - PNEUMONIA ASPIRATION [None]
  - PULMONARY HAEMORRHAGE [None]
  - RESTLESS LEGS SYNDROME [None]
  - URINE OUTPUT DECREASED [None]
  - WALKING AID USER [None]
  - WHITE BLOOD CELL COUNT DECREASED [None]
